FAERS Safety Report 8969903 (Version 1)
Quarter: 2012Q4

REPORT INFORMATION
  Report Type: 
  Country: US (occurrence: US)
  Receive Date: 20121218
  Receipt Date: 20121218
  Transmission Date: 20130627
  Serious: No
  Sender: FDA-Public Use
  Company Number: US-BRISTOL-MYERS SQUIBB COMPANY-16220741

PATIENT
  Age: 36 Year
  Sex: Female

DRUGS (4)
  1. ABILIFY [Suspect]
     Indication: DEPRESSION
     Route: 048
     Dates: start: 20100322, end: 20110922
  2. ABILIFY [Suspect]
     Indication: MAJOR DEPRESSION
     Route: 048
     Dates: start: 20100322, end: 20110922
  3. PRISTIQ [Concomitant]
  4. ZOLOFT [Concomitant]

REACTIONS (1)
  - Blood prolactin increased [Unknown]
